FAERS Safety Report 8513215-8 (Version None)
Quarter: 2012Q3

REPORT INFORMATION
  Report Type: 
  Country: None (occurrence: None)
  Receive Date: 20120716
  Receipt Date: 20120712
  Transmission Date: 20120928
  Serious: Yes (Death)
  Sender: FDA-Public Use
  Company Number: US-CELGENEUS-163-21880-12063403

PATIENT
  Sex: Male
  Weight: 77.634 kg

DRUGS (3)
  1. REVLIMID [Suspect]
     Indication: NON-HODGKIN'S LYMPHOMA
     Dosage: 25 MILLIGRAM
     Route: 048
     Dates: start: 20120426, end: 20120517
  2. ASPIRIN [Concomitant]
     Dosage: 81 MILLIGRAM
     Route: 048
     Dates: start: 20120426, end: 20120512
  3. LEVOFLOXACIN [Concomitant]
     Indication: INFECTION
     Dosage: 500 MILLIGRAM
     Route: 048
     Dates: start: 20120420, end: 20120427

REACTIONS (1)
  - NON-HODGKIN'S LYMPHOMA [None]
